FAERS Safety Report 19326956 (Version 1)
Quarter: 2021Q2

REPORT INFORMATION
  Report Type: Spontaneous
  Country: US (occurrence: US)
  Receive Date: 20210528
  Receipt Date: 20210528
  Transmission Date: 20210717
  Serious: Yes (Hospitalization, Other)
  Sender: FDA-Public Use
  Company Number: US-SA-2020SA361517

PATIENT
  Age: 17 Year
  Sex: Male

DRUGS (1)
  1. DIPHENHYDRAMINE. [Suspect]
     Active Substance: DIPHENHYDRAMINE
     Indication: SUICIDAL IDEATION
     Dosage: INGESTED 40 TABLETS OF 50 MG
     Route: 048

REACTIONS (12)
  - Electrocardiogram QT prolonged [Recovered/Resolved]
  - Intentional overdose [Recovered/Resolved]
  - Hypotension [Recovering/Resolving]
  - Tachycardia [Recovered/Resolved]
  - Pupillary reflex impaired [Recovered/Resolved]
  - Metabolic acidosis [Recovered/Resolved]
  - Seizure like phenomena [Recovered/Resolved]
  - Mydriasis [Recovered/Resolved]
  - Toxicity to various agents [Recovered/Resolved]
  - Unresponsive to stimuli [Recovered/Resolved]
  - Bundle branch block right [Recovered/Resolved]
  - Tachypnoea [Recovered/Resolved]
